FAERS Safety Report 15668322 (Version 1)
Quarter: 2018Q4

REPORT INFORMATION
  Report Type: Report from Study
  Country: GB (occurrence: GB)
  Receive Date: 20181129
  Receipt Date: 20181129
  Transmission Date: 20190205
  Serious: Yes (Death, Other)
  Sender: FDA-Public Use
  Company Number: GB-SUN PHARMACEUTICAL INDUSTRIES LTD-2018RR-192230

PATIENT
  Age: 42 Year
  Sex: Male

DRUGS (6)
  1. BICALUTAMIDE. [Suspect]
     Active Substance: BICALUTAMIDE
     Indication: DISEASE PROGRESSION
     Dosage: UNK
     Route: 065
  2. XELODA [Suspect]
     Active Substance: CAPECITABINE
     Indication: NEOPLASM MALIGNANT
     Dosage: UNK
     Route: 065
  3. PACLITAXEL. [Suspect]
     Active Substance: PACLITAXEL
     Indication: DISEASE PROGRESSION
     Dosage: UNK
     Route: 065
  4. CISPLATIN. [Suspect]
     Active Substance: CISPLATIN
     Indication: NEOPLASM MALIGNANT
     Dosage: SIX CYCLES
     Route: 065
  5. ERIBULIN [Suspect]
     Active Substance: ERIBULIN
     Indication: DISEASE PROGRESSION
     Dosage: UNK
     Route: 065
  6. EPIRUBICIN [Suspect]
     Active Substance: EPIRUBICIN
     Indication: NEOPLASM MALIGNANT
     Dosage: SIX CYCLES
     Route: 065

REACTIONS (2)
  - Acquired gene mutation [Unknown]
  - Disease progression [Fatal]
